FAERS Safety Report 4968981-5 (Version None)
Quarter: 2006Q2

REPORT INFORMATION
  Report Type: 
  Country: None (occurrence: None)
  Receive Date: 20060411
  Receipt Date: 20051019
  Transmission Date: 20061013
  Serious: Yes (Hospitalization, Disabling)
  Sender: FDA-Public Use
  Company Number: US-MERCK-0510USA08289

PATIENT
  Age: 67 Year
  Sex: Female
  Weight: 89 kg

DRUGS (5)
  1. [THERAPY UNSPECIFIED] [Concomitant]
     Route: 065
  2. VIOXX [Suspect]
     Indication: PAIN
     Route: 048
     Dates: start: 19990707, end: 20000312
  3. TYLENOL (CAPLET) [Concomitant]
     Indication: PAIN
     Route: 065
     Dates: start: 19930101
  4. PREMPRO [Concomitant]
     Indication: BONE DISORDER
     Route: 065
     Dates: start: 19970101, end: 20050101
  5. PREMARIN [Concomitant]
     Indication: BONE DISORDER
     Route: 065
     Dates: start: 19970101, end: 20050101

REACTIONS (9)
  - BLOOD CHOLESTEROL INCREASED [None]
  - CARDIAC FAILURE [None]
  - DYSPNOEA [None]
  - GOITRE [None]
  - GOUT [None]
  - HYPERTENSION [None]
  - OSTEOARTHRITIS [None]
  - RENAL FAILURE CHRONIC [None]
  - THYROID DISORDER [None]
